FAERS Safety Report 5409972-X (Version None)
Quarter: 2007Q3

REPORT INFORMATION
  Report Type: 
  Country: None (occurrence: None)
  Receive Date: 20070713
  Receipt Date: 20070426
  Transmission Date: 20080115
  Serious: No
  Sender: FDA-Public Use
  Company Number: 2007SP001538

PATIENT
  Age: 87 Year
  Sex: Male

DRUGS (3)
  1. LUNESTA [Suspect]
     Dosage: 1 MG;HS;ORAL
     Route: 048
     Dates: start: 20070420
  2. ASPIRIN [Concomitant]
  3. SIMVASTATIN [Concomitant]

REACTIONS (2)
  - DRUG INEFFECTIVE [None]
  - INSOMNIA [None]
